FAERS Safety Report 5164013-7 (Version None)
Quarter: 2006Q4

REPORT INFORMATION
  Report Type: 
  Country: None (occurrence: None)
  Receive Date: 20061204
  Receipt Date: 20060309
  Transmission Date: 20070319
  Serious: Yes (Hospitalization)
  Sender: FDA-Public Use
  Company Number: DE-BOEHRINGER INGELHEIM PHARMACEUTICALS, INC.-2006-BP-02718BP

PATIENT
  Sex: Male
  Weight: 63 kg

DRUGS (9)
  1. MICARDIS [Suspect]
     Indication: CARDIOVASCULAR DISORDER
     Route: 048
     Dates: start: 20020704, end: 20050926
  2. MICARDIS [Suspect]
     Indication: CEREBROVASCULAR ACCIDENT PROPHYLAXIS
  3. RAMIPRIL [Suspect]
     Indication: CARDIOVASCULAR DISORDER
     Route: 048
     Dates: start: 20020704, end: 20050926
  4. RAMIPRIL [Suspect]
     Indication: CEREBROVASCULAR ACCIDENT PROPHYLAXIS
  5. METOPROLOL SUCCINATE [Concomitant]
  6. ATORVASTATIN CALCIUM [Concomitant]
  7. PANTOPRAZOLE SODIUM [Concomitant]
  8. INSULIN [Concomitant]
  9. LEVOTHYROXINE SODIUM [Concomitant]

REACTIONS (6)
  - DIZZINESS [None]
  - DYSPNOEA [None]
  - FATIGUE [None]
  - HAEMODIALYSIS [None]
  - OEDEMA [None]
  - RENAL FAILURE ACUTE [None]
